FAERS Safety Report 7796351-3 (Version None)
Quarter: 2011Q4

REPORT INFORMATION
  Report Type: 
  Country: None (occurrence: None)
  Receive Date: 20111005
  Receipt Date: 20110926
  Transmission Date: 20120403
  Serious: Yes (Hospitalization)
  Sender: FDA-Public Use
  Company Number: BR-BIOGENIDEC-2009BI020744

PATIENT
  Age: 53 Year
  Sex: Male

DRUGS (7)
  1. UNKNOWN MEDICATION [Concomitant]
     Indication: HYPERTENSION
  2. CAPTOPRIL [Concomitant]
     Indication: HYPERTENSION
  3. AVONEX [Suspect]
     Indication: MULTIPLE SCLEROSIS
     Route: 030
     Dates: start: 20090526
  4. VITAMINS (NOS) [Concomitant]
     Dates: start: 20090701
  5. ATENOLOL [Concomitant]
     Indication: HYPERTENSION
  6. ACETYLSALICYLIC ACID SRT [Concomitant]
     Indication: HYPERTENSION
     Route: 048
  7. DIPYRONE TAB [Concomitant]
     Indication: PROPHYLAXIS
     Route: 042
     Dates: start: 20090630, end: 20090630

REACTIONS (9)
  - BONE PAIN [None]
  - PAIN [None]
  - MEMORY IMPAIRMENT [None]
  - HEADACHE [None]
  - HYPERTENSION [None]
  - GAIT DISTURBANCE [None]
  - NASOPHARYNGITIS [None]
  - SPEECH DISORDER [None]
  - MUSCULAR WEAKNESS [None]
